FAERS Safety Report 7378879-3 (Version None)
Quarter: 2011Q1

REPORT INFORMATION
  Report Type: 
  Country: None (occurrence: None)
  Receive Date: 20110328
  Receipt Date: 20110321
  Transmission Date: 20110831
  Serious: Yes (Hospitalization, Congenital Anomaly, Other)
  Sender: FDA-Public Use
  Company Number: US-PFIZER INC-2010092594

PATIENT
  Sex: Male
  Weight: 2.721 kg

DRUGS (3)
  1. ZOLOFT [Suspect]
     Indication: ANXIETY DISORDER
  2. ZOLOFT [Suspect]
     Indication: DEPRESSION
     Dosage: 50 MG, UNK
     Route: 064
     Dates: start: 20020122
  3. ZOLOFT [Suspect]
     Indication: PANIC DISORDER

REACTIONS (22)
  - TAKAYASU'S ARTERITIS [None]
  - BRONCHIOLITIS [None]
  - OESOPHAGEAL STENOSIS [None]
  - JAUNDICE NEONATAL [None]
  - VENTRICULAR SEPTAL DEFECT [None]
  - ACUTE SINUSITIS [None]
  - HAEMATURIA [None]
  - LYMPHADENITIS [None]
  - UPPER RESPIRATORY TRACT INFECTION [None]
  - CONGENITAL CORONARY ARTERY MALFORMATION [None]
  - OTITIS MEDIA [None]
  - ATRIAL SEPTAL DEFECT [None]
  - TRICUSPID VALVE INCOMPETENCE [None]
  - CARDIAC MURMUR [None]
  - CYANOSIS [None]
  - TACHYPNOEA [None]
  - PULMONARY OEDEMA [None]
  - CELLULITIS [None]
  - DRUG EXPOSURE DURING PREGNANCY [None]
  - PULMONARY HYPERTENSION [None]
  - CARDIAC SEPTAL DEFECT [None]
  - CARDIOMEGALY [None]
